FAERS Safety Report 8319146-0 (Version None)
Quarter: 2012Q2

REPORT INFORMATION
  Report Type: 
  Country: None (occurrence: None)
  Receive Date: 20120427
  Receipt Date: 20120424
  Transmission Date: 20120825
  Serious: Yes (Disabling)
  Sender: FDA-Public Use
  Company Number: US-MERCK-1112USA01778

PATIENT
  Age: 58 Year
  Sex: Female

DRUGS (4)
  1. FOSAMAX [Suspect]
     Indication: OSTEOPENIA
     Route: 048
     Dates: start: 19980901, end: 20080901
  2. FOSAMAX [Suspect]
     Route: 048
     Dates: start: 19980901, end: 20100601
  3. ACTONEL [Suspect]
     Indication: OSTEOPENIA
     Route: 048
     Dates: start: 20081001, end: 20090601
  4. FOSAMAX PLUS D [Suspect]
     Indication: OSTEOPENIA
     Route: 048
     Dates: start: 19980901, end: 20100601

REACTIONS (4)
  - OSTEOPOROSIS [None]
  - BURSITIS [None]
  - JOINT SWELLING [None]
  - FEMUR FRACTURE [None]
